FAERS Safety Report 10176286 (Version 1)
Quarter: 2014Q2

REPORT INFORMATION
  Report Type: Spontaneous
  Country: US (occurrence: None)
  Receive Date: 20140515
  Receipt Date: 20140515
  Transmission Date: 20141212
  Serious: Yes (Life-Threatening, Hospitalization, Other)
  Sender: FDA-Public Use
  Company Number: None

PATIENT
  Age: 7 Day
  Sex: Female
  Weight: .5 kg

DRUGS (9)
  1. AZITHROMYCIN [Suspect]
     Indication: ASPIRATION TRACHEAL
     Route: 042
     Dates: start: 20140412, end: 20140416
  2. AZITHROMYCIN [Suspect]
     Indication: UREAPLASMA TEST POSITIVE
     Route: 042
     Dates: start: 20140412, end: 20140416
  3. AMPICILLIN [Concomitant]
  4. TOBRAMYCIN [Concomitant]
  5. CAFFEINE CITRATE [Concomitant]
  6. INFANT TPN AND FAT EMULSION DAILY [Concomitant]
  7. FENTANYL [Concomitant]
  8. LACTOBACILLUS ACIDOPHILUS/L PARACASEI/BIFIDOBACTERIUM/STREPTOCOCUS THERMOPHYLUS (FLORA Q 2) [Concomitant]
  9. MOTHER^S OWN BREAT MILK [Concomitant]

REACTIONS (1)
  - Jejunal perforation [None]
